FAERS Safety Report 16956452 (Version 2)
Quarter: 2019Q4

REPORT INFORMATION
  Report Type: Spontaneous
  Country: PE (occurrence: PE)
  Receive Date: 20191024
  Receipt Date: 20191025
  Transmission Date: 20200122
  Serious: Yes (Death)
  Sender: FDA-Public Use
  Company Number: PE-PFIZER INC-2019459164

PATIENT
  Sex: Female

DRUGS (1)
  1. PALBOCICLIB [Suspect]
     Active Substance: PALBOCICLIB
     Indication: BREAST CANCER METASTATIC
     Dosage: 125 MG DAILY (21 DAYS ON, 7 DAYS OFF)
     Route: 048

REACTIONS (1)
  - Death [Fatal]
